FAERS Safety Report 10183745 (Version 1)
Quarter: 2014Q2

REPORT INFORMATION
  Report Type: Spontaneous
  Country: US (occurrence: US)
  Receive Date: 20140520
  Receipt Date: 20140520
  Transmission Date: 20141212
  Serious: Yes (Other)
  Sender: FDA-Public Use
  Company Number: US-PFIZER INC-2014136372

PATIENT
  Age: 78 Year
  Sex: Male
  Weight: 77.1 kg

DRUGS (3)
  1. TIKOSYN [Suspect]
     Indication: ATRIAL FIBRILLATION
     Dosage: 250 UG, 2X/DAY
     Dates: start: 2011
  2. TIKOSYN [Suspect]
     Indication: SUPRAVENTRICULAR TACHYCARDIA
  3. LISINOPRIL [Concomitant]
     Indication: HYPERTENSION
     Dosage: 20 MG, DAILY

REACTIONS (4)
  - Squamous cell carcinoma of skin [Unknown]
  - Staphylococcal infection [Unknown]
  - Wound secretion [Recovered/Resolved]
  - Wound haemorrhage [Recovered/Resolved]
